FAERS Safety Report 6117733-1 (Version None)
Quarter: 2009Q1

REPORT INFORMATION
  Report Type: 
  Country: None (occurrence: None)
  Receive Date: 20090314
  Receipt Date: 20090126
  Transmission Date: 20090719
  Serious: No
  Sender: FDA-Public Use
  Company Number: US-ABBOTT-09P-163-0500012-00

PATIENT
  Sex: Male
  Weight: 87.622 kg

DRUGS (1)
  1. HUMIRA [Suspect]
     Indication: RHEUMATOID ARTHRITIS
     Dates: start: 20070301

REACTIONS (3)
  - DIARRHOEA [None]
  - NAUSEA [None]
  - TREMOR [None]
